FAERS Safety Report 7646757-8 (Version None)
Quarter: 2011Q3

REPORT INFORMATION
  Report Type: 
  Country: None (occurrence: None)
  Receive Date: 20110801
  Receipt Date: 20110719
  Transmission Date: 20111222
  Serious: Yes (Other)
  Sender: FDA-Public Use
  Company Number: US-RB-027163-11

PATIENT
  Age: 48 Year
  Sex: Male

DRUGS (1)
  1. MUCINEX [Suspect]
     Route: 048

REACTIONS (2)
  - HAEMOPTYSIS [None]
  - INCORRECT DRUG ADMINISTRATION DURATION [None]
